FAERS Safety Report 8162224-X (Version None)
Quarter: 2012Q1

REPORT INFORMATION
  Report Type: 
  Country: None (occurrence: None)
  Receive Date: 20120224
  Receipt Date: 20111012
  Transmission Date: 20120608
  Serious: No
  Sender: FDA-Public Use
  Company Number: US-BRISTOL-MYERS SQUIBB COMPANY-16158156

PATIENT
  Sex: Male

DRUGS (2)
  1. NOVOLOG [Suspect]
  2. METFORMIN HCL [Suspect]

REACTIONS (2)
  - HYPERSENSITIVITY [None]
  - BLOOD GLUCOSE ABNORMAL [None]
